FAERS Safety Report 25102264 (Version 1)
Quarter: 2025Q1

REPORT INFORMATION
  Report Type: Report from Study
  Country: CL (occurrence: CL)
  Receive Date: 20250320
  Receipt Date: 20250320
  Transmission Date: 20250408
  Serious: Yes (Other)
  Sender: JOHNSON AND JOHNSON
  Company Number: CL-BAYER-2025A038205

PATIENT
  Age: 37 Year
  Sex: Female

DRUGS (1)
  1. VENTAVIS [Suspect]
     Active Substance: ILOPROST
     Indication: Pulmonary hypertension
     Dosage: 1 ML, QD
     Route: 055
     Dates: start: 20250127, end: 20250318

REACTIONS (4)
  - Tachycardia [Recovered/Resolved]
  - Intentional product use issue [Unknown]
  - Product prescribing issue [Recovered/Resolved]
  - Myalgia [Recovered/Resolved]

NARRATIVE: CASE EVENT DATE: 20250127
